FAERS Safety Report 16737820 (Version 2)
Quarter: 2019Q3

REPORT INFORMATION
  Report Type: Spontaneous
  Country: IT (occurrence: IT)
  Receive Date: 20190824
  Receipt Date: 20190920
  Transmission Date: 20191005
  Serious: Yes (Other)
  Sender: FDA-Public Use
  Company Number: IT-TEVA-2019-IT-1095382

PATIENT
  Age: 75 Year
  Sex: Female
  Weight: 50 kg

DRUGS (4)
  1. CISPLATINO TEVA [Suspect]
     Active Substance: CISPLATIN
     Indication: FALLOPIAN TUBE CANCER
     Dosage: 57MG/ WEEK/ 28 DAYS
     Route: 042
     Dates: start: 20190613, end: 20190711
  2. RANIDIL 50 MG/5 ML SOLUZIONE INIETTABILE PER USO ENDOVENOSO [Concomitant]
     Active Substance: RANITIDINE
     Indication: PREMEDICATION
     Dosage: 50MG
     Route: 042
     Dates: start: 20190711, end: 20190711
  3. SOLDESAM [Concomitant]
     Active Substance: DEXAMETHASONE
     Indication: PREMEDICATION
     Dosage: 8MG
     Route: 042
     Dates: start: 20190711, end: 20190711
  4. ALOXI 250 MICROGRAMS SOLUTION FOR INJECTION [Concomitant]
     Indication: PREMEDICATION
     Dosage: 250MCG
     Route: 042

REACTIONS (3)
  - Infusion related reaction [Recovering/Resolving]
  - Bronchospasm [Recovering/Resolving]
  - Angioedema [Recovering/Resolving]

NARRATIVE: CASE EVENT DATE: 20190711
